FAERS Safety Report 20902534 (Version 1)
Quarter: 2022Q2

REPORT INFORMATION
  Report Type: Spontaneous
  Country: US (occurrence: US)
  Receive Date: 20220601
  Receipt Date: 20220601
  Transmission Date: 20220720
  Serious: No
  Sender: FDA-Public Use
  Company Number: US-BIOGEN-2022BI01128049

PATIENT
  Age: 63 Year
  Sex: Female

DRUGS (2)
  1. VUMERITY [Suspect]
     Active Substance: DIROXIMEL FUMARATE
     Indication: Multiple sclerosis
     Route: 065
     Dates: start: 20210512
  2. ESTROGENS [Concomitant]
     Active Substance: ESTROGENS
     Route: 065

REACTIONS (3)
  - Night sweats [Unknown]
  - Skin odour abnormal [Unknown]
  - Mental disorder [Unknown]

NARRATIVE: CASE EVENT DATE: 20210512
